FAERS Safety Report 13738591 (Version 1)
Quarter: 2017Q3

REPORT INFORMATION
  Report Type: Report from Study
  Country: US (occurrence: US)
  Receive Date: 20170710
  Receipt Date: 20170710
  Transmission Date: 20171127
  Serious: No
  Sender: FDA-Public Use
  Company Number: US-SAOL THERAPEUTICS-2017SAO00188

PATIENT
  Sex: Female

DRUGS (12)
  1. COMPOUNDED BACLOFEN [Suspect]
     Active Substance: BACLOFEN
     Dosage: 81 ?G, \DAY
     Route: 037
     Dates: start: 20151112, end: 20160211
  2. DILAUDID [Suspect]
     Active Substance: HYDROMORPHONE HYDROCHLORIDE
     Dosage: 0.450 MG, \DAY
     Route: 037
     Dates: start: 20151112, end: 20160211
  3. BUPIVACAINE. [Suspect]
     Active Substance: BUPIVACAINE
     Dosage: 6.176 MG, \DAY
     Route: 037
     Dates: start: 20160211
  4. COMPOUNDED BACLOFEN [Suspect]
     Active Substance: BACLOFEN
     Dosage: 115.89 ?G, \DAY
     Route: 037
     Dates: start: 20151112, end: 20160211
  5. DILAUDID [Suspect]
     Active Substance: HYDROMORPHONE HYDROCHLORIDE
     Dosage: 450.5 ?G, \DAY
     Route: 037
     Dates: start: 20160211
  6. COMPOUNDED BACLOFEN [Suspect]
     Active Substance: BACLOFEN
     Dosage: 57.92 ?G, \DAY
     Route: 037
     Dates: start: 20160211
  7. DILAUDID [Suspect]
     Active Substance: HYDROMORPHONE HYDROCHLORIDE
     Dosage: 0.644 MG, \DAY
     Route: 037
     Dates: start: 20151112, end: 20160211
  8. BUPIVACAINE. [Suspect]
     Active Substance: BUPIVACAINE
     Dosage: 7.726 MG, \DAY
     Route: 037
     Dates: start: 20151112, end: 20160211
  9. COMPOUNDED BACLOFEN [Suspect]
     Active Substance: BACLOFEN
     Dosage: 92.64 ?G, \DAY
     Route: 037
     Dates: start: 20160211
  10. BUPIVACAINE. [Suspect]
     Active Substance: BUPIVACAINE
     Dosage: 5.4 MG, \DAY
     Route: 037
     Dates: start: 20151112, end: 20160211
  11. DILAUDID [Suspect]
     Active Substance: HYDROMORPHONE HYDROCHLORIDE
     Dosage: 720.6 ?G, \DAY
     Route: 037
     Dates: start: 20160211
  12. BUPIVACAINE. [Suspect]
     Active Substance: BUPIVACAINE
     Dosage: 3.861 MG, \DAY
     Route: 037
     Dates: start: 20160211

REACTIONS (1)
  - Catheter site pain [Recovered/Resolved]

NARRATIVE: CASE EVENT DATE: 20160211
